FAERS Safety Report 11058115 (Version 2)
Quarter: 2015Q2

REPORT INFORMATION
  Report Type: Spontaneous
  Country: US (occurrence: None)
  Receive Date: 20150421
  Receipt Date: 20150521
  Transmission Date: 20150821
  Serious: Yes (Life-Threatening, Hospitalization)
  Sender: FDA-Public Use
  Company Number: 1713747-2015-999126

PATIENT
  Sex: Male

DRUGS (23)
  1. DELFLEX [Suspect]
     Active Substance: CALCIUM CHLORIDE\DEXTROSE MONOHYDRATE\MAGNESIUM CHLORIDE\SODIUM CHLORIDE\SODIUM LACTATE
     Indication: PERITONEAL DIALYSIS
     Route: 033
  2. LIBERTY CYCLER [Concomitant]
     Active Substance: DEVICE
  3. CALCITRIOL. [Concomitant]
     Active Substance: CALCITRIOL
  4. GENTAMICIN. [Concomitant]
     Active Substance: GENTAMICIN
  5. COLESTIPOL [Concomitant]
     Active Substance: COLESTIPOL
  6. FUROSEMIDE. [Concomitant]
     Active Substance: FUROSEMIDE
  7. PROBIOTIC [Concomitant]
     Active Substance: PROBIOTICS NOS
  8. LIDODERM [Concomitant]
     Active Substance: LIDOCAINE
  9. ZOLPIDEM [Concomitant]
     Active Substance: ZOLPIDEM\ZOLPIDEM TARTRATE
  10. EXCEDRIN BACK AND BODY [Concomitant]
     Active Substance: ACETAMINOPHEN\ASPIRIN
  11. FINASTERIDE. [Concomitant]
     Active Substance: FINASTERIDE
  12. ASPIRIN. [Concomitant]
     Active Substance: ASPIRIN
  13. CENTRUM SILVER [Concomitant]
     Active Substance: VITAMINS
  14. DOCUSATE SODIUM. [Concomitant]
     Active Substance: DOCUSATE SODIUM
  15. METOPROLOL SUCCINATE. [Concomitant]
     Active Substance: METOPROLOL SUCCINATE
  16. NEPHRO-VIET [Concomitant]
  17. LIPITOR [Concomitant]
     Active Substance: ATORVASTATIN CALCIUM
  18. OXYBUTYNIN CHLORIDE. [Concomitant]
     Active Substance: OXYBUTYNIN CHLORIDE
  19. SERTRALINE [Concomitant]
     Active Substance: SERTRALINE HYDROCHLORIDE
  20. LIBERTY CYCLER SET [Concomitant]
     Active Substance: DEVICE
  21. CELEBREX [Concomitant]
     Active Substance: CELECOXIB
  22. FISH OIL [Concomitant]
     Active Substance: FISH OIL
  23. TAMSULOSIN [Concomitant]
     Active Substance: TAMSULOSIN

REACTIONS (1)
  - Cerebrovascular accident [None]

NARRATIVE: CASE EVENT DATE: 20150401
